FAERS Safety Report 9679384 (Version 1)
Quarter: 2013Q4

REPORT INFORMATION
  Report Type: Spontaneous
  Country: CA (occurrence: CA)
  Receive Date: 20131109
  Receipt Date: 20131109
  Transmission Date: 20140711
  Serious: Yes (Death, Hospitalization)
  Sender: FDA-Public Use
  Company Number: CA-AMGEN-CANSP2013078246

PATIENT
  Age: 68 Year
  Sex: Female

DRUGS (1)
  1. SENSIPAR [Suspect]
     Indication: RENAL IMPAIRMENT
     Dosage: 30 MG, UNK
     Route: 065
     Dates: start: 20131023, end: 20131101

REACTIONS (2)
  - Death [Fatal]
  - Investigation [Unknown]
